FAERS Safety Report 4691435-0 (Version None)
Quarter: 2005Q2

REPORT INFORMATION
  Report Type: 
  Country: None (occurrence: None)
  Receive Date: 20050613
  Receipt Date: 20050325
  Transmission Date: 20051028
  Serious: Yes (Other)
  Sender: FDA-Public Use
  Company Number: S05-USA-01602-01

PATIENT
  Age: 72 Year
  Sex: Male

DRUGS (7)
  1. LEXAPRO [Suspect]
     Indication: DEPRESSION
     Dosage: 10 MG QD PO
     Route: 048
     Dates: start: 20050308
  2. LOPRESSOR [Suspect]
     Indication: HYPERTENSION
     Dates: end: 20050401
  3. KLONOPIN [Concomitant]
  4. ALTACE [Concomitant]
  5. HYTRIN [Concomitant]
  6. NORVASC [Concomitant]
  7. WATER PILLS (2) (NOS) [Concomitant]

REACTIONS (2)
  - FATIGUE [None]
  - HEART RATE DECREASED [None]
